FAERS Safety Report 13268499 (Version 2)
Quarter: 2017Q1

REPORT INFORMATION
  Report Type: Spontaneous
  Country: IT (occurrence: IT)
  Receive Date: 20170224
  Receipt Date: 20170301
  Transmission Date: 20170428
  Serious: Yes (Other)
  Sender: FDA-Public Use
  Company Number: IT-IPSEN BIOPHARMACEUTICALS, INC.-2017-01431

PATIENT
  Sex: Male

DRUGS (2)
  1. AZZALURE [Suspect]
     Active Substance: BOTULINUM TOXIN TYPE A
     Dosage: 10 UNITS
     Route: 065
     Dates: start: 20170206, end: 20170206
  2. AZZALURE [Suspect]
     Active Substance: BOTULINUM TOXIN TYPE A
     Indication: SKIN WRINKLING
     Dosage: 50 UNITS
     Route: 065
     Dates: start: 20170120, end: 20170120

REACTIONS (3)
  - Facial paralysis [Unknown]
  - Inappropriate schedule of drug administration [Unknown]
  - Paralytic lagophthalmos [Unknown]

NARRATIVE: CASE EVENT DATE: 201702
